FAERS Safety Report 8236072-6 (Version None)
Quarter: 2012Q1

REPORT INFORMATION
  Report Type: 
  Country: None (occurrence: None)
  Receive Date: 20120327
  Receipt Date: 20120315
  Transmission Date: 20120608
  Serious: Yes (Other)
  Sender: FDA-Public Use
  Company Number: AR-AMGEN-ARGSP2012017747

PATIENT
  Age: 57 Year
  Sex: Female

DRUGS (4)
  1. DICLOFENAC SODIUM [Concomitant]
     Dosage: UNK
  2. XALATAN [Concomitant]
     Dosage: UNK
  3. ENBREL [Suspect]
     Indication: RHEUMATOID ARTHRITIS
     Dosage: 50 MG, WEEKLY
     Route: 058
     Dates: start: 20070626
  4. PAXON                              /00803202/ [Concomitant]
     Dosage: UNK

REACTIONS (5)
  - DRY SKIN [None]
  - RHEUMATOID ARTHRITIS [None]
  - ARTHRALGIA [None]
  - DRY MOUTH [None]
  - DRY EYE [None]
